FAERS Safety Report 25017555 (Version 1)
Quarter: 2025Q1

REPORT INFORMATION
  Report Type: Spontaneous
  Country: CN (occurrence: CN)
  Receive Date: 20250227
  Receipt Date: 20250227
  Transmission Date: 20250408
  Serious: Yes (Other)
  Sender: ASTELLAS
  Company Number: CN-ASTELLAS-2025-AER-010763

PATIENT
  Age: 52 Year
  Sex: Female
  Weight: 58 kg

DRUGS (3)
  1. PROGRAF [Suspect]
     Active Substance: TACROLIMUS
     Indication: Myelodysplastic syndrome
     Route: 048
     Dates: start: 20250216, end: 20250219
  2. PROGRAF [Suspect]
     Active Substance: TACROLIMUS
     Indication: Graft versus host disease
  3. PROGRAF [Suspect]
     Active Substance: TACROLIMUS
     Indication: Bone marrow transplant

REACTIONS (2)
  - Immunosuppressant drug level increased [Recovered/Resolved]
  - Off label use [Unknown]

NARRATIVE: CASE EVENT DATE: 20250216
